FAERS Safety Report 14061119 (Version 1)
Quarter: 2017Q4

REPORT INFORMATION
  Report Type: Report from Study
  Country: US (occurrence: US)
  Receive Date: 20171008
  Receipt Date: 20171008
  Transmission Date: 20180321
  Serious: No
  Sender: FDA-Public Use
  Company Number: US-BIOGEN-2017BV000334

PATIENT
  Sex: Male

DRUGS (3)
  1. ALPROLIX [Suspect]
     Active Substance: EFTRENONACOG ALFA
     Dosage: UNKNOWN
     Route: 065
     Dates: start: 20170612
  2. ALPROLIX [Suspect]
     Active Substance: EFTRENONACOG ALFA
     Dosage: UNKNOWN
     Route: 065
  3. ALPROLIX [Suspect]
     Active Substance: EFTRENONACOG ALFA
     Indication: FACTOR IX DEFICIENCY
     Dosage: UNKNOWN
     Route: 065
     Dates: start: 20170501, end: 20170611

REACTIONS (3)
  - Limb injury [Unknown]
  - Abnormal behaviour [Unknown]
  - Irritability [Unknown]
